FAERS Safety Report 6408208-0 (Version None)
Quarter: 2009Q4

REPORT INFORMATION
  Report Type: 
  Country: None (occurrence: None)
  Receive Date: 20091019
  Receipt Date: 20091013
  Transmission Date: 20100525
  Serious: Yes (Other)
  Sender: FDA-Public Use
  Company Number: 1000009430

PATIENT
  Age: 65 Year
  Sex: Female

DRUGS (6)
  1. BYSTOLIC [Suspect]
     Indication: HEART RATE INCREASED
     Dosage: 10 MG (10 MG, 1 IN 1 D),ORAL
     Route: 048
     Dates: start: 20091005
  2. ASPIRIN [Concomitant]
  3. KLOR-CON [Concomitant]
  4. BUMEX [Concomitant]
  5. SPIRONOLACTONE [Concomitant]
  6. XANAX XR [Concomitant]

REACTIONS (1)
  - ATRIAL FIBRILLATION [None]
